FAERS Safety Report 6784887-3 (Version None)
Quarter: 2010Q2

REPORT INFORMATION
  Report Type: 
  Country: None (occurrence: None)
  Receive Date: 20100622
  Receipt Date: 20100617
  Transmission Date: 20101027
  Serious: Yes (Death, Other)
  Sender: FDA-Public Use
  Company Number: US-CELGENEUS-163-20785-10050292

PATIENT
  Sex: Male
  Weight: 83.99 kg

DRUGS (8)
  1. THALOMID [Suspect]
     Indication: MULTIPLE MYELOMA
     Route: 048
     Dates: start: 20100401, end: 20100428
  2. THALOMID [Suspect]
     Route: 048
     Dates: start: 20090401
  3. DEXAMETHASONE ACETATE [Concomitant]
     Indication: DRUG USE FOR UNKNOWN INDICATION
     Route: 065
     Dates: end: 20100428
  4. HCTZ [Concomitant]
     Indication: DRUG USE FOR UNKNOWN INDICATION
     Route: 065
     Dates: end: 20100428
  5. REMERON [Concomitant]
     Indication: DRUG USE FOR UNKNOWN INDICATION
     Route: 065
  6. LORAZEPAM [Concomitant]
     Indication: DRUG USE FOR UNKNOWN INDICATION
     Route: 065
  7. SENNA [Concomitant]
     Indication: DRUG USE FOR UNKNOWN INDICATION
     Route: 065
  8. ZOMETA [Concomitant]
     Indication: DRUG USE FOR UNKNOWN INDICATION
     Route: 065

REACTIONS (6)
  - ASTHENIA [None]
  - CONFUSIONAL STATE [None]
  - FALL [None]
  - IDIOPATHIC THROMBOCYTOPENIC PURPURA [None]
  - MULTIPLE MYELOMA [None]
  - NEUTROPENIA [None]
